FAERS Safety Report 12915625 (Version 1)
Quarter: 2016Q4

REPORT INFORMATION
  Report Type: Spontaneous
  Country: US (occurrence: US)
  Receive Date: 20161106
  Receipt Date: 20161106
  Transmission Date: 20170207
  Serious: No
  Sender: FDA-Public Use
  Company Number: US-RELYPSA-RLY2016002231

PATIENT
  Sex: Female

DRUGS (13)
  1. VELTASSA [Suspect]
     Active Substance: PATIROMER
     Indication: HYPERKALAEMIA
     Dosage: 8.4 G, QD
     Route: 048
     Dates: start: 20160610
  2. IRON [Concomitant]
     Active Substance: IRON
  3. CIMETIDINE [Concomitant]
     Active Substance: CIMETIDINE
  4. JANUVIA [Concomitant]
     Active Substance: SITAGLIPTIN PHOSPHATE
  5. MULTIVITAMINS, PLAIN [Concomitant]
     Active Substance: VITAMINS
  6. LORAZEPAM. [Concomitant]
     Active Substance: LORAZEPAM
  7. NORVASC [Concomitant]
     Active Substance: AMLODIPINE BESYLATE
  8. ALLOPURINOL. [Concomitant]
     Active Substance: ALLOPURINOL
  9. ASPIRIN                            /00002701/ [Concomitant]
     Active Substance: ASPIRIN
  10. VITAMIN D3 [Concomitant]
     Active Substance: CHOLECALCIFEROL
  11. FLUOXETINE HCL [Concomitant]
     Active Substance: FLUOXETINE HYDROCHLORIDE
  12. LIPITOR [Concomitant]
     Active Substance: ATORVASTATIN CALCIUM
  13. DIOVAN HCT [Concomitant]
     Active Substance: HYDROCHLOROTHIAZIDE\VALSARTAN

REACTIONS (5)
  - Inappropriate schedule of drug administration [Not Recovered/Not Resolved]
  - Pruritus [Unknown]
  - Drug intolerance [Not Recovered/Not Resolved]
  - Muscle spasms [Unknown]
  - Discomfort [Unknown]

NARRATIVE: CASE EVENT DATE: 2016
